FAERS Safety Report 4766761-7 (Version None)
Quarter: 2005Q3

REPORT INFORMATION
  Report Type: 
  Country: None (occurrence: None)
  Receive Date: 20050912
  Receipt Date: 20050609
  Transmission Date: 20060218
  Serious: Yes (Death, Hospitalization)
  Sender: FDA-Public Use
  Company Number: US-MERCK-0506USA01858

PATIENT
  Age: 74 Year
  Sex: Female
  Weight: 64 kg

DRUGS (10)
  1. VIOXX [Suspect]
     Route: 048
     Dates: start: 20000101, end: 20030601
  2. MONOPRIL [Concomitant]
     Route: 065
     Dates: start: 20020101, end: 20030917
  3. ATENOLOL [Concomitant]
     Route: 065
     Dates: start: 20000101, end: 20030101
  4. PLAVIX [Concomitant]
     Route: 065
     Dates: start: 19990101, end: 20030917
  5. AMARYL [Concomitant]
     Route: 065
     Dates: start: 20000901, end: 20030101
  6. GLUCOPHAGE [Concomitant]
     Route: 065
  7. PAXIL [Concomitant]
     Route: 065
     Dates: start: 20020101, end: 20020701
  8. ASPIRIN [Concomitant]
     Route: 065
     Dates: start: 19900101, end: 20030917
  9. DEPAKOTE [Concomitant]
     Route: 065
     Dates: start: 20010101, end: 20020101
  10. GLUCOTROL [Concomitant]
     Route: 065

REACTIONS (5)
  - BLOOD CHOLESTEROL INCREASED [None]
  - CEREBROVASCULAR ACCIDENT [None]
  - DIARRHOEA [None]
  - INSOMNIA [None]
  - MYOCARDIAL INFARCTION [None]
